FAERS Safety Report 13530755 (Version 1)
Quarter: 2017Q2

REPORT INFORMATION
  Report Type: Spontaneous
  Country: RS (occurrence: RS)
  Receive Date: 20170510
  Receipt Date: 20170510
  Transmission Date: 20170830
  Serious: Yes (Other)
  Sender: FDA-Public Use
  Company Number: RS-UCBSA-2017016875

PATIENT
  Age: 9 Year
  Sex: Male
  Weight: 40 kg

DRUGS (3)
  1. XYZAL [Suspect]
     Active Substance: LEVOCETIRIZINE DIHYDROCHLORIDE
     Indication: SEASONAL ALLERGY
     Dosage: 1 DF, ONCE DAILY (QD)
     Route: 048
     Dates: start: 20170403, end: 20170403
  2. NASONEX [Concomitant]
     Active Substance: MOMETASONE FUROATE
     Indication: SEASONAL ALLERGY
     Dosage: UNK
     Route: 045
     Dates: start: 20170403, end: 20170413
  3. MARINOL [Concomitant]
     Active Substance: DRONABINOL
     Indication: SEASONAL ALLERGY
     Dosage: UNK
     Dates: start: 20170403, end: 20170413

REACTIONS (4)
  - Restlessness [Recovered/Resolved]
  - Somnolence [Recovered/Resolved]
  - Sluggishness [Recovered/Resolved]
  - Mental impairment [Recovered/Resolved]

NARRATIVE: CASE EVENT DATE: 20170403
